FAERS Safety Report 6876937-0 (Version None)
Quarter: 2010Q3

REPORT INFORMATION
  Report Type: 
  Country: None (occurrence: None)
  Receive Date: 20100727
  Receipt Date: 20100716
  Transmission Date: 20110219
  Serious: Yes (Death, Life-Threatening)
  Sender: FDA-Public Use
  Company Number: BR-ELI_LILLY_AND_COMPANY-BR201007003955

PATIENT
  Sex: Male
  Weight: 72 kg

DRUGS (26)
  1. PRASUGREL HYDROCHLORIDE [Suspect]
     Indication: ACUTE CORONARY SYNDROME
     Dosage: UNK, UNK
     Dates: start: 20100702, end: 20100715
  2. ASPIRIN [Concomitant]
     Dosage: 100 MG, UNK
     Dates: start: 20100201, end: 20100628
  3. ASPIRIN [Concomitant]
     Dosage: 200 MG, UNK
     Dates: start: 20100629
  4. ENOXAPARIN SODIUM [Concomitant]
     Indication: PROPHYLAXIS
     Dosage: UNK, UNK
     Dates: start: 20100629, end: 20100715
  5. CARVEDILOL [Concomitant]
     Indication: PROPHYLAXIS
     Dosage: UNK, UNK
     Dates: start: 20100629, end: 20100715
  6. CAPOTEN [Concomitant]
     Indication: HYPERTENSION
     Dosage: UNK, UNK
     Dates: start: 20100629, end: 20100715
  7. SIMVASTATIN [Concomitant]
     Indication: PROPHYLAXIS
     Dosage: UNK, UNK
     Dates: start: 20100629, end: 20100715
  8. MONONITRATO DE ISOSSORBIDA [Concomitant]
     Indication: PROPHYLAXIS
     Dosage: UNK, UNK
     Dates: start: 20100629, end: 20100715
  9. DIGOXIN [Concomitant]
     Indication: PROPHYLAXIS
     Dosage: UNK, UNK
     Dates: start: 20100629, end: 20100715
  10. FUROSEMIDE [Concomitant]
     Indication: PROPHYLAXIS
     Dosage: UNK, UNK
     Dates: start: 20100629, end: 20100715
  11. ALDACTONE [Concomitant]
     Indication: HYPERTENSION
     Dosage: UNK, UNK
     Dates: start: 20100629, end: 20100715
  12. DIPYRONE [Concomitant]
     Indication: PROPHYLAXIS
     Dosage: UNK, UNK
     Dates: start: 20100701, end: 20100715
  13. ISORDIL [Concomitant]
     Indication: PROPHYLAXIS
     Dosage: UNK, UNK
     Dates: start: 20100703, end: 20100715
  14. TRIDIL /00003201/ [Concomitant]
     Indication: PROPHYLAXIS
     Dosage: UNK, UNK
     Dates: start: 20100703, end: 20100715
  15. RANITIDINE [Concomitant]
     Indication: PROPHYLAXIS
     Dosage: UNK, UNK
     Dates: start: 20100703, end: 20100715
  16. TRAMADOL HCL [Concomitant]
     Indication: PROPHYLAXIS
     Dosage: UNK, UNK
     Dates: start: 20100703, end: 20100715
  17. TILATIL [Concomitant]
     Indication: PROPHYLAXIS
     Dosage: UNK, UNK
     Dates: start: 20100703, end: 20100715
  18. DIMORF [Concomitant]
     Indication: PROPHYLAXIS
     Dosage: UNK, UNK
     Dates: start: 20100705, end: 20100715
  19. SELOKEN [Concomitant]
     Indication: PROPHYLAXIS
     Dosage: UNK, UNK
     Dates: start: 20100706, end: 20100715
  20. METOCLOPRAMIDA [Concomitant]
     Indication: PROPHYLAXIS
     Dosage: UNK, UNK
     Dates: start: 20100706, end: 20100715
  21. ZYLORIC [Concomitant]
     Indication: PROPHYLAXIS
     Dosage: UNK, UNK
     Dates: start: 20100707, end: 20100715
  22. COLCHICINA [Concomitant]
     Indication: PROPHYLAXIS
     Dosage: UNK, UNK
     Dates: start: 20100706, end: 20100715
  23. DOBUTAMINA [Concomitant]
     Indication: PROPHYLAXIS
     Dosage: UNK, UNK
     Dates: start: 20100706, end: 20100715
  24. DESLANOSIDE [Concomitant]
     Indication: PROPHYLAXIS
     Dosage: UNK, UNK
     Dates: start: 20100707, end: 20100715
  25. DULCOLAX [Concomitant]
     Indication: PROPHYLAXIS
     Dosage: UNK, UNK
     Dates: start: 20100708, end: 20100715
  26. LUFTAL [Concomitant]
     Indication: PROPHYLAXIS
     Dosage: UNK, UNK
     Dates: start: 20100708, end: 20100715

REACTIONS (1)
  - PERICARDIAL EFFUSION [None]
